FAERS Safety Report 12834302 (Version 1)
Quarter: 2016Q4

REPORT INFORMATION
  Report Type: Spontaneous
  Country: BE (occurrence: BE)
  Receive Date: 20161010
  Receipt Date: 20161010
  Transmission Date: 20170207
  Serious: Yes (Death, Life-Threatening, Hospitalization, Other)
  Sender: FDA-Public Use
  Company Number: BE-009507513-1609BEL006884

PATIENT
  Age: 60 Year
  Sex: Male

DRUGS (3)
  1. EUSAPRIM [Suspect]
     Active Substance: SULFAMETHOXAZOLE\TRIMETHOPRIM
     Dosage: 3 DF, QW
  2. TEMODAL [Suspect]
     Active Substance: TEMOZOLOMIDE
     Dosage: 75 MG/M2, QD
     Route: 048
     Dates: start: 20160710, end: 20160819
  3. BACTRIM [Suspect]
     Active Substance: SULFAMETHOXAZOLE\TRIMETHOPRIM

REACTIONS (23)
  - Aortic thrombosis [Unknown]
  - Anisocytosis [Not Recovered/Not Resolved]
  - Blood albumin decreased [Unknown]
  - Anion gap increased [Not Recovered/Not Resolved]
  - Lymphocyte percentage decreased [Not Recovered/Not Resolved]
  - Neutrophil toxic granulation present [Unknown]
  - Blood urea increased [Unknown]
  - Red blood cell sedimentation rate increased [Unknown]
  - Lipase increased [Unknown]
  - Aortic arteriosclerosis [Unknown]
  - Hepatotoxicity [Fatal]
  - Blood phosphorus increased [Unknown]
  - Blood bicarbonate decreased [Unknown]
  - Macrocytosis [Unknown]
  - Glomerular filtration rate decreased [Not Recovered/Not Resolved]
  - Blood uric acid increased [Unknown]
  - Blood sodium decreased [Unknown]
  - Ammonia increased [Unknown]
  - Blood creatinine increased [Not Recovered/Not Resolved]
  - Lymphocyte count decreased [Not Recovered/Not Resolved]
  - Platelet count increased [Unknown]
  - Mental status changes [Unknown]
  - Red blood cell nucleated morphology present [Unknown]

NARRATIVE: CASE EVENT DATE: 20160831
